FAERS Safety Report 21077146 (Version 5)
Quarter: 2023Q1

REPORT INFORMATION
  Report Type: Report from Study
  Country: GB (occurrence: GB)
  Receive Date: 20220713
  Receipt Date: 20230125
  Transmission Date: 20230418
  Serious: Yes (Hospitalization)
  Sender: FDA-Public Use
  Company Number: GB-GLAXOSMITHKLINE-GB2022103793

PATIENT

DRUGS (23)
  1. BELANTAMAB MAFODOTIN [Suspect]
     Active Substance: BELANTAMAB MAFODOTIN
     Indication: Plasma cell myeloma
     Dosage: 305.00 MG, CYC (2.50 MG/KG)
     Route: 042
     Dates: start: 20210528, end: 20211105
  2. BELANTAMAB MAFODOTIN [Suspect]
     Active Substance: BELANTAMAB MAFODOTIN
     Dosage: 295.00 MG, CYC (2.50 MG/KG)
     Route: 042
     Dates: start: 20211126, end: 20211126
  3. BELANTAMAB MAFODOTIN [Suspect]
     Active Substance: BELANTAMAB MAFODOTIN
     Dosage: 305.00 MG, CYC (2.50 MG/KG)
     Route: 042
     Dates: start: 20211217, end: 20220107
  4. BELANTAMAB MAFODOTIN [Suspect]
     Active Substance: BELANTAMAB MAFODOTIN
     Dosage: 295.00 MG, CYC (2.50 MG/KG)
     Route: 042
     Dates: start: 20220128, end: 20220218
  5. BELANTAMAB MAFODOTIN [Suspect]
     Active Substance: BELANTAMAB MAFODOTIN
     Dosage: 280.00 MG, CYC (2.50 MG/KG)
     Route: 042
     Dates: start: 20220311
  6. BORTEZOMIB [Suspect]
     Active Substance: BORTEZOMIB
     Indication: Plasma cell myeloma
     Dosage: 3 MG, CYC (1.30 MG/M2)
     Route: 058
     Dates: start: 20210528, end: 20210625
  7. BORTEZOMIB [Suspect]
     Active Substance: BORTEZOMIB
     Dosage: 2.25 MG, CYC (1.00 MG/M2)
     Route: 058
     Dates: start: 20210723, end: 20210816
  8. BORTEZOMIB [Suspect]
     Active Substance: BORTEZOMIB
     Dosage: 0.70 MG, CYC (1.00 MG/M2)
     Route: 058
     Dates: start: 20210820
  9. DEXAMETHASONE [Suspect]
     Active Substance: DEXAMETHASONE
     Indication: Plasma cell myeloma
     Dosage: 20 MG, CYC
     Route: 048
     Dates: start: 20210528, end: 20210726
  10. DEXAMETHASONE [Suspect]
     Active Substance: DEXAMETHASONE
     Dosage: 20 MG, CYC
     Route: 048
     Dates: start: 20210730
  11. DEXAMETHASONE [Suspect]
     Active Substance: DEXAMETHASONE
     Dosage: 20 MG, CYC
     Route: 048
     Dates: start: 20210802, end: 20210906
  12. DEXAMETHASONE [Suspect]
     Active Substance: DEXAMETHASONE
     Dosage: 20 MG, CYC
     Route: 048
     Dates: start: 20210910
  13. DEXAMETHASONE [Suspect]
     Active Substance: DEXAMETHASONE
     Dosage: 20 MG, CYC
     Route: 048
     Dates: start: 20210913, end: 20210927
  14. DEXAMETHASONE [Suspect]
     Active Substance: DEXAMETHASONE
     Dosage: 20 MG, CYC
     Route: 048
     Dates: start: 20211001
  15. DEXAMETHASONE [Suspect]
     Active Substance: DEXAMETHASONE
     Dosage: 20 MG, CYC
     Route: 048
     Dates: start: 20211005
  16. PREGABALIN [Concomitant]
     Active Substance: PREGABALIN
     Indication: Neuropathy peripheral
     Dosage: 50 MG, BID
     Route: 048
     Dates: start: 20220318
  17. ALBUTEROL [Concomitant]
     Active Substance: ALBUTEROL
     Indication: Wheezing
     Dosage: 2 PUFF(S), QID
     Route: 055
     Dates: start: 20220709
  18. LOPERAMIDE [Concomitant]
     Active Substance: LOPERAMIDE
     Indication: Diarrhoea
     Dosage: 2 MG, BID
     Route: 048
     Dates: start: 20220621, end: 20221111
  19. DOMPERIDONE [Concomitant]
     Active Substance: DOMPERIDONE
     Indication: Illness
     Dosage: 10 MG, TID
     Route: 048
     Dates: start: 20220312
  20. FOLIC ACID [Concomitant]
     Active Substance: FOLIC ACID
     Indication: Vitamin supplementation
     Dosage: 5 MG, 1D
     Route: 048
     Dates: start: 20220318
  21. ENOXAPARIN [Concomitant]
     Active Substance: ENOXAPARIN
     Indication: Thrombosis prophylaxis
     Dosage: 40 MG, 1D
     Route: 058
     Dates: start: 20220706
  22. ENOXAPARIN [Concomitant]
     Active Substance: ENOXAPARIN
     Indication: Thrombosis prophylaxis
  23. CALCIUM CARBONATE\CHOLECALCIFEROL [Concomitant]
     Active Substance: CALCIUM CARBONATE\CHOLECALCIFEROL
     Indication: Mineral supplementation
     Dosage: 1 TABLET, BID
     Route: 048
     Dates: start: 2015, end: 20221130

REACTIONS (1)
  - Hypervolaemia [Recovered/Resolved with Sequelae]

NARRATIVE: CASE EVENT DATE: 20220706
